FAERS Safety Report 13112740 (Version 1)
Quarter: 2017Q1

REPORT INFORMATION
  Report Type: Spontaneous
  Country: ES (occurrence: ES)
  Receive Date: 20170113
  Receipt Date: 20170113
  Transmission Date: 20170428
  Serious: Yes (Other)
  Sender: FDA-Public Use
  Company Number: ES-SUN PHARMACEUTICAL INDUSTRIES LTD-2008RR-18043

PATIENT
  Age: 39 Year
  Sex: Female

DRUGS (1)
  1. ISOTRETINOIN [Suspect]
     Active Substance: ISOTRETINOIN
     Indication: ACNE
     Dosage: 20 MG, BID, FOR 7 A HALF WEEKS
     Route: 048

REACTIONS (9)
  - Skin exfoliation [Recovered/Resolved]
  - Dry eye [Recovered/Resolved]
  - Vision blurred [Recovered/Resolved]
  - Blindness transient [Recovered/Resolved]
  - Meibomian gland dysfunction [Recovered/Resolved]
  - Corneal disorder [Recovered/Resolved]
  - Erythema [Recovered/Resolved]
  - Vital dye staining cornea present [Recovered/Resolved]
  - Conjunctival hyperaemia [Recovered/Resolved]
